FAERS Safety Report 25205746 (Version 2)
Quarter: 2025Q2

REPORT INFORMATION
  Report Type: Report from Study
  Country: US (occurrence: US)
  Receive Date: 20250417
  Receipt Date: 20250425
  Transmission Date: 20250716
  Serious: Yes (Other)
  Sender: BAUSCH AND LOMB
  Company Number: US-BAUSCHBL-2025BNL006353

PATIENT
  Age: 71 Year
  Sex: Female

DRUGS (1)
  1. VYZULTA [Suspect]
     Active Substance: LATANOPROSTENE BUNOD
     Indication: Product used for unknown indication
     Route: 047

REACTIONS (8)
  - Surgery [Unknown]
  - Ileostomy [Unknown]
  - Colectomy total [Recovered/Resolved]
  - Immunodeficiency [Unknown]
  - Fatigue [Unknown]
  - Asthma [Unknown]
  - Gastrointestinal infection [Unknown]
  - Inability to afford medication [Unknown]

NARRATIVE: CASE EVENT DATE: 20050101
